FAERS Safety Report 7381327-0 (Version None)
Quarter: 2011Q1

REPORT INFORMATION
  Report Type: 
  Country: None (occurrence: None)
  Receive Date: 20110321
  Receipt Date: 20110311
  Transmission Date: 20110831
  Serious: Yes (Hospitalization)
  Sender: FDA-Public Use
  Company Number: 2011SP008116

PATIENT
  Age: 41 Year
  Sex: Female

DRUGS (1)
  1. NUVARING [Suspect]
     Indication: CONTRACEPTION
     Dates: start: 20090611, end: 20101201

REACTIONS (3)
  - ABORTION MISSED [None]
  - PREGNANCY WITH CONTRACEPTIVE DEVICE [None]
  - DRUG EXPOSURE DURING PREGNANCY [None]
